FAERS Safety Report 5511267-0 (Version None)
Quarter: 2007Q4

REPORT INFORMATION
  Report Type: 
  Country: None (occurrence: None)
  Receive Date: 20071109
  Receipt Date: 20071030
  Transmission Date: 20080405
  Serious: Yes (Other)
  Sender: FDA-Public Use
  Company Number: US-JNJFOC-20071100212

PATIENT
  Age: 67 Year
  Sex: Male
  Weight: 103.87 kg

DRUGS (11)
  1. REMICADE [Suspect]
     Indication: PSORIATIC ARTHROPATHY
     Route: 042
  2. FLOMAX [Concomitant]
  3. ALTACE [Concomitant]
  4. ACTOS [Concomitant]
  5. METHOTREXATE [Concomitant]
  6. FOLIC ACID [Concomitant]
  7. LEXAPRO [Concomitant]
  8. ZOCOR [Concomitant]
  9. ZANTAC [Concomitant]
  10. METFORMIN HCL [Concomitant]
  11. JANUVIA [Concomitant]

REACTIONS (3)
  - BLADDER CANCER [None]
  - DRUG INEFFECTIVE [None]
  - PNEUMONIA [None]
